FAERS Safety Report 6395796-6 (Version None)
Quarter: 2009Q4

REPORT INFORMATION
  Report Type: 
  Country: None (occurrence: None)
  Receive Date: 20091009
  Receipt Date: 20091002
  Transmission Date: 20100525
  Serious: No
  Sender: FDA-Public Use
  Company Number: US-B.I. PHARMACEUTICALS,INC./RIDGEFIELD-2009-BP-11568BP

PATIENT
  Age: 32 Year
  Sex: Male

DRUGS (3)
  1. VIRAMUNE [Suspect]
     Indication: HIV INFECTION
     Dosage: 400 MG
     Route: 048
     Dates: start: 20090101
  2. VIRAMUNE [Suspect]
     Dosage: 400 MG
     Route: 048
     Dates: start: 20090301
  3. TRUVADA [Concomitant]
     Indication: HIV INFECTION

REACTIONS (2)
  - ANTIVIRAL DRUG LEVEL BELOW THERAPEUTIC [None]
  - INAPPROPRIATE SCHEDULE OF DRUG ADMINISTRATION [None]
